FAERS Safety Report 7707859-0 (Version None)
Quarter: 2011Q3

REPORT INFORMATION
  Report Type: 
  Country: None (occurrence: None)
  Receive Date: 20110824
  Receipt Date: 20110107
  Transmission Date: 20111222
  Serious: No
  Sender: FDA-Public Use
  Company Number: US-BAYER-2011-003819

PATIENT
  Age: 58 Year
  Sex: Male
  Weight: 73.923 kg

DRUGS (5)
  1. CRESTOR [Concomitant]
  2. LAMICTAL [Concomitant]
  3. CARDIZEM [Concomitant]
  4. HYDROCHLOROTHIAZIDE [Concomitant]
  5. MAGNEVIST [Suspect]
     Indication: NUCLEAR MAGNETIC RESONANCE IMAGING
     Dosage: 15 ML, UNK
     Route: 042
     Dates: start: 20110107

REACTIONS (2)
  - LIP PRURITUS [None]
  - THROAT IRRITATION [None]
